FAERS Safety Report 13667401 (Version 4)
Quarter: 2024Q3

REPORT INFORMATION
  Report Type: Spontaneous
  Country: CA (occurrence: CA)
  Receive Date: 20170620
  Receipt Date: 20240925
  Transmission Date: 20241016
  Serious: Yes (Other)
  Sender: ROCHE
  Company Number: CA-ROCHE-1951316

PATIENT
  Age: 62 Year
  Sex: Male
  Weight: 113 kg

DRUGS (15)
  1. RITUXAN [Suspect]
     Active Substance: RITUXIMAB
     Indication: Rheumatoid arthritis
     Route: 042
  2. AMLODIPINE BESYLATE [Suspect]
     Active Substance: AMLODIPINE BESYLATE
     Indication: Product used for unknown indication
     Route: 065
  3. PANTOPRAZOLE MAGNESIUM [Suspect]
     Active Substance: PANTOPRAZOLE MAGNESIUM
     Indication: Product used for unknown indication
     Route: 048
  4. PANTOPRAZOLE MAGNESIUM [Suspect]
     Active Substance: PANTOPRAZOLE MAGNESIUM
     Route: 065
  5. ACETAMINOPHEN [Concomitant]
     Active Substance: ACETAMINOPHEN
     Route: 048
  6. ADVAIR HFA [Concomitant]
     Active Substance: FLUTICASONE PROPIONATE\SALMETEROL XINAFOATE
     Route: 065
  7. APIXABAN [Concomitant]
     Active Substance: APIXABAN
     Route: 065
  8. CELEBREX [Concomitant]
     Active Substance: CELECOXIB
  9. DIOVAN [Concomitant]
     Active Substance: VALSARTAN
     Indication: Blood pressure abnormal
  10. DIPHENHYDRAMINE HYDROCHLORIDE [Concomitant]
     Active Substance: DIPHENHYDRAMINE HYDROCHLORIDE
     Dosage: OINTMENT
     Route: 048
  11. FOLIC ACID [Concomitant]
     Active Substance: FOLIC ACID
  12. METHOTREXATE [Concomitant]
     Active Substance: METHOTREXATE
     Route: 048
  13. METHYLPREDNISOLONE [Concomitant]
     Active Substance: METHYLPREDNISOLONE
     Route: 042
  14. PREDNISONE [Concomitant]
     Active Substance: PREDNISONE
     Route: 065
  15. ELIQUIS [Concomitant]
     Active Substance: APIXABAN
     Route: 065

REACTIONS (12)
  - Gallbladder disorder [Not Recovered/Not Resolved]
  - Blood pressure increased [Not Recovered/Not Resolved]
  - Therapeutic product effect decreased [Unknown]
  - Heart rate decreased [Not Recovered/Not Resolved]
  - Hypotension [Not Recovered/Not Resolved]
  - Malaise [Not Recovered/Not Resolved]
  - Pain [Not Recovered/Not Resolved]
  - Respiratory tract congestion [Not Recovered/Not Resolved]
  - Weight decreased [Not Recovered/Not Resolved]
  - Lower respiratory tract congestion [Not Recovered/Not Resolved]
  - Thrombosis [Not Recovered/Not Resolved]
  - White blood cell count decreased [Not Recovered/Not Resolved]
